FAERS Safety Report 8262398-6 (Version None)
Quarter: 2012Q2

REPORT INFORMATION
  Report Type: 
  Country: None (occurrence: None)
  Receive Date: 20120405
  Receipt Date: 20120330
  Transmission Date: 20120825
  Serious: Yes (Other)
  Sender: FDA-Public Use
  Company Number: US-JNJFOC-20120307078

PATIENT
  Sex: Female
  Weight: 77.11 kg

DRUGS (9)
  1. LEVOTHYROXINE SODIUM [Concomitant]
     Indication: HYPOTHYROIDISM
     Route: 048
  2. FLUTICASONE FUROATE [Concomitant]
     Indication: MULTIPLE ALLERGIES
     Dates: start: 20100101
  3. SPIRONOLACTONE [Concomitant]
     Route: 048
  4. ZYRTEC [Concomitant]
     Indication: MULTIPLE ALLERGIES
     Route: 048
     Dates: start: 20100101
  5. FOLIC ACID [Concomitant]
     Indication: RHEUMATOID ARTHRITIS
     Route: 048
     Dates: start: 20060101
  6. ZETIA [Concomitant]
     Indication: BLOOD CHOLESTEROL
     Route: 048
     Dates: start: 20100101
  7. METHOTREXATE [Concomitant]
     Indication: RHEUMATOID ARTHRITIS
     Route: 048
     Dates: start: 20060101
  8. SIMPONI [Suspect]
     Indication: RHEUMATOID ARTHRITIS
     Route: 058
     Dates: start: 20110701
  9. TIZANIDINE HCL [Concomitant]
     Indication: MUSCLE RELAXANT THERAPY
     Route: 048
     Dates: start: 20070101

REACTIONS (7)
  - DEVICE MALFUNCTION [None]
  - DRUG DOSE OMISSION [None]
  - SINUSITIS [None]
  - CONTUSION [None]
  - HERPES VIRUS INFECTION [None]
  - EAR INFECTION [None]
  - INJECTION SITE HAEMATOMA [None]
